FAERS Safety Report 10581628 (Version 2)
Quarter: 2014Q4

REPORT INFORMATION
  Report Type: Spontaneous
  Country: US (occurrence: None)
  Receive Date: 20141110
  Receipt Date: 20141126
  Transmission Date: 20150529
  Serious: Yes (Hospitalization, Other)
  Sender: FDA-Public Use
  Company Number: 2014-US-009775

PATIENT
  Age: 67 Year
  Sex: Male

DRUGS (6)
  1. PRIALT [Suspect]
     Active Substance: ZICONOTIDE ACETATE
     Indication: POST LAMINECTOMY SYNDROME
     Dosage: UNK UG
     Route: 037
     Dates: end: 20140820
  2. VALIUM [Concomitant]
     Active Substance: DIAZEPAM
  3. HYDROCODONE (HYDROCODONE BITARTRATE) [Concomitant]
     Active Substance: HYDROCODONE BITARTRATE
  4. MSIR (MORPHINE SULFATE) [Concomitant]
  5. PRIALT [Suspect]
     Active Substance: ZICONOTIDE ACETATE
     Indication: PAIN
     Dosage: UNK UG
     Route: 037
     Dates: end: 20140820
  6. SALINE (SODIUM CHLORIDE) [Concomitant]

REACTIONS (12)
  - Morbid thoughts [None]
  - Abdominal discomfort [None]
  - Thinking abnormal [None]
  - Device issue [None]
  - Nightmare [None]
  - Spinal pain [None]
  - Urinary retention [None]
  - Dizziness [None]
  - Device malfunction [None]
  - Pain [None]
  - Urinary tract infection [None]
  - Nausea [None]
